FAERS Safety Report 5087586-1 (Version None)
Quarter: 2006Q3

REPORT INFORMATION
  Report Type: 
  Country: None (occurrence: None)
  Receive Date: 20060824
  Receipt Date: 20060816
  Transmission Date: 20061208
  Serious: Yes (Hospitalization)
  Sender: FDA-Public Use
  Company Number: PHNU2006DE02790

PATIENT
  Age: 43 Year
  Sex: Female

DRUGS (1)
  1. EMSELEX EXTENDED RELEASE [Suspect]
     Indication: HYPERTONIC BLADDER
     Dosage: 7.5 MG DAILY
     Route: 048
     Dates: start: 20060713, end: 20060804

REACTIONS (2)
  - CONSTIPATION [None]
  - ILEUS PARALYTIC [None]
